FAERS Safety Report 13143121 (Version 2)
Quarter: 2017Q1

REPORT INFORMATION
  Report Type: Spontaneous
  Country: US (occurrence: US)
  Receive Date: 20170124
  Receipt Date: 20170131
  Transmission Date: 20170428
  Serious: No
  Sender: FDA-Public Use
  Company Number: US-PFIZER INC-2017029787

PATIENT
  Sex: Female

DRUGS (1)
  1. XELJANZ XR [Suspect]
     Active Substance: TOFACITINIB CITRATE
     Dosage: UNK

REACTIONS (11)
  - Chills [Unknown]
  - Dry eye [Unknown]
  - Rash [Unknown]
  - Depression [Unknown]
  - Arthralgia [Unknown]
  - Contusion [Unknown]
  - Weight increased [Unknown]
  - Oedema peripheral [Unknown]
  - Fatigue [Unknown]
  - Joint stiffness [Unknown]
  - Joint swelling [Unknown]
